FAERS Safety Report 6189866-5 (Version None)
Quarter: 2009Q2

REPORT INFORMATION
  Report Type: 
  Country: None (occurrence: None)
  Receive Date: 20090514
  Receipt Date: 20090508
  Transmission Date: 20091009
  Serious: Yes (Other)
  Sender: FDA-Public Use
  Company Number: BR-ASTRAZENECA-2009UW11972

PATIENT
  Age: 82 Year
  Sex: Female

DRUGS (1)
  1. ARIMIDEX [Suspect]
     Indication: NEOPLASM MALIGNANT
     Route: 048
     Dates: start: 20060101, end: 20090401

REACTIONS (2)
  - GASTRITIS [None]
  - NEOPLASM [None]
